FAERS Safety Report 7426873-6 (Version None)
Quarter: 2011Q2

REPORT INFORMATION
  Report Type: 
  Country: None (occurrence: None)
  Receive Date: 20110420
  Receipt Date: 20110412
  Transmission Date: 20111010
  Serious: Yes (Other)
  Sender: FDA-Public Use
  Company Number: US-ABBOTT-11P-163-0718835-00

PATIENT
  Sex: Female
  Weight: 81.266 kg

DRUGS (1)
  1. SYNTHROID [Suspect]
     Indication: HYPOTHYROIDISM
     Dates: start: 20070101, end: 20110404

REACTIONS (13)
  - DIZZINESS [None]
  - VOMITING [None]
  - TINNITUS [None]
  - BLOOD THYROID STIMULATING HORMONE INCREASED [None]
  - DRUG INEFFECTIVE [None]
  - PNEUMONIA [None]
  - VISION BLURRED [None]
  - FEELING ABNORMAL [None]
  - PYREXIA [None]
  - TOXICITY TO VARIOUS AGENTS [None]
  - COUGH [None]
  - DEAFNESS [None]
  - HYPERSENSITIVITY [None]
